FAERS Safety Report 21210930 (Version 3)
Quarter: 2022Q4

REPORT INFORMATION
  Report Type: Report from Study
  Country: CA (occurrence: CA)
  Receive Date: 20220815
  Receipt Date: 20221031
  Transmission Date: 20230113
  Serious: Yes (Other)
  Sender: FDA-Public Use
  Company Number: CA-NOVARTISPH-NVSC2022CA183177

PATIENT
  Sex: Female

DRUGS (3)
  1. METHOTREXATE [Suspect]
     Active Substance: METHOTREXATE
     Indication: Product used for unknown indication
     Dosage: UNK
     Route: 058
     Dates: start: 2016, end: 2016
  2. LEFLUNOMIDE [Suspect]
     Active Substance: LEFLUNOMIDE
     Indication: Product used for unknown indication
     Dosage: UNK
     Route: 048
     Dates: start: 2017, end: 2017
  3. SULFASALAZINE [Concomitant]
     Active Substance: SULFASALAZINE
     Indication: Product used for unknown indication
     Dosage: UNK
     Route: 048
     Dates: start: 2017, end: 2017

REACTIONS (10)
  - Psoriatic arthropathy [Unknown]
  - Ankylosing spondylitis [Unknown]
  - Pain [Unknown]
  - Grip strength decreased [Unknown]
  - Musculoskeletal stiffness [Unknown]
  - Drug intolerance [Unknown]
  - Peripheral swelling [Unknown]
  - Pain in extremity [Unknown]
  - Vomiting [Unknown]
  - Dizziness [Unknown]

NARRATIVE: CASE EVENT DATE: 20160101
